FAERS Safety Report 12133796 (Version 2)
Quarter: 2016Q2

REPORT INFORMATION
  Report Type: Spontaneous
  Country: NL (occurrence: NL)
  Receive Date: 20160301
  Receipt Date: 20160414
  Transmission Date: 20160815
  Serious: Yes (Other)
  Sender: FDA-Public Use
  Company Number: NL-PFIZER INC-2016118300

PATIENT
  Age: 45 Year
  Sex: Female

DRUGS (6)
  1. PANTOPRAZOLE [Suspect]
     Active Substance: PANTOPRAZOLE SODIUM
     Indication: ANTACID THERAPY
     Dosage: 20 MG, DAILY
  2. PANTOPRAZOLE [Interacting]
     Active Substance: PANTOPRAZOLE SODIUM
     Indication: GASTROINTESTINAL DISORDER
  3. PREDNISOLONE. [Concomitant]
     Active Substance: PREDNISOLONE
     Dosage: UNK (20-30 MG PER DAY IN A TAPERING DOSE)
     Route: 048
  4. AZATHIOPRINE. [Interacting]
     Active Substance: AZATHIOPRINE
     Indication: DYSHIDROTIC ECZEMA
     Dosage: 100 MG, DAILY
  5. AZATHIOPRINE. [Interacting]
     Active Substance: AZATHIOPRINE
     Dosage: 150 MG, DAILY
  6. AZATHIOPRINE. [Interacting]
     Active Substance: AZATHIOPRINE
     Indication: DERMATITIS ATOPIC
     Dosage: 50 MG, DAILY

REACTIONS (2)
  - Liver injury [Recovered/Resolved]
  - Drug interaction [Recovered/Resolved]
